FAERS Safety Report 25959424 (Version 1)
Quarter: 2025Q4

REPORT INFORMATION
  Report Type: Spontaneous
  Country: CN (occurrence: CN)
  Receive Date: 20251026
  Receipt Date: 20251026
  Transmission Date: 20260118
  Serious: Yes (Hospitalization)
  Sender: ALEXION PHARMACEUTICALS
  Company Number: CN-ASTRAZENECA-202510CHN019270CN

PATIENT
  Age: 54 Year
  Sex: Male
  Weight: 70 kg

DRUGS (1)
  1. BRILINTA [Suspect]
     Active Substance: TICAGRELOR
     Indication: Antiplatelet therapy
     Dosage: 90.000000 MILLIGRAM,2 TIMES 1 DAY

REACTIONS (1)
  - Tachypnoea [Recovering/Resolving]

NARRATIVE: CASE EVENT DATE: 20250703
